FAERS Safety Report 7964203-1 (Version None)
Quarter: 2011Q4

REPORT INFORMATION
  Report Type: 
  Country: None (occurrence: None)
  Receive Date: 20111208
  Receipt Date: 20111130
  Transmission Date: 20120403
  Serious: Yes (Hospitalization, Other)
  Sender: FDA-Public Use
  Company Number: US-US-EMD SERONO, INC.-7088824

PATIENT
  Sex: Female
  Weight: 73 kg

DRUGS (9)
  1. TOPROL-XL [Concomitant]
     Indication: HYPERTENSION
  2. NEURONTIN [Concomitant]
     Indication: PAIN
  3. MIRAPEX [Concomitant]
     Indication: RESTLESS LEGS SYNDROME
  4. LISINOPRIL [Concomitant]
     Indication: HYPERTENSION
  5. SINGULAIR [Concomitant]
     Indication: HYPERSENSITIVITY
  6. REBIF [Suspect]
     Indication: MULTIPLE SCLEROSIS
     Dates: start: 20031001, end: 20101226
  7. SYMBICORT [Concomitant]
     Indication: HYPERSENSITIVITY
  8. ALIGN [Concomitant]
     Indication: ROUTINE HEALTH MAINTENANCE
  9. FLOMAX [Concomitant]
     Indication: NEUROGENIC BLADDER
     Route: 048

REACTIONS (2)
  - COLOSTOMY [None]
  - LARGE INTESTINE PERFORATION [None]
